FAERS Safety Report 7771332-4 (Version None)
Quarter: 2011Q3

REPORT INFORMATION
  Report Type: 
  Country: None (occurrence: None)
  Receive Date: 20110922
  Receipt Date: 20110912
  Transmission Date: 20111222
  Serious: Yes (Hospitalization)
  Sender: FDA-Public Use
  Company Number: CA-JNJFOC-20110906206

PATIENT
  Sex: Male
  Weight: 75.6 kg

DRUGS (4)
  1. ASACOL [Concomitant]
  2. REMICADE [Suspect]
     Indication: CROHN'S DISEASE
     Dosage: 20TH INFUSION
     Route: 042
     Dates: start: 20110711
  3. REMICADE [Suspect]
     Dosage: 21ST INFUSION
     Route: 042
     Dates: start: 20110912
  4. REMICADE [Suspect]
     Route: 042

REACTIONS (2)
  - TIBIA FRACTURE [None]
  - ROAD TRAFFIC ACCIDENT [None]
